FAERS Safety Report 5316760-1 (Version None)
Quarter: 2007Q2

REPORT INFORMATION
  Report Type: 
  Country: None (occurrence: None)
  Receive Date: 20070504
  Receipt Date: 20070424
  Transmission Date: 20071010
  Serious: Yes (Other)
  Sender: FDA-Public Use
  Company Number: GB-ABBOTT-07P-167-0366660-00

PATIENT

DRUGS (6)
  1. CYCLOSPORINE [Suspect]
     Indication: IMMUNOSUPPRESSION
  2. CYCLOSPORINE [Suspect]
     Dosage: NOT REPORTED
     Dates: end: 20020201
  3. CYCLOSPORINE [Suspect]
     Dosage: NOT REPORTED
     Dates: start: 20020201
  4. AZATHIOPRINE [Concomitant]
     Indication: IMMUNOSUPPRESSION
  5. AZATHIOPRINE [Concomitant]
  6. PREDNISOLONE [Concomitant]
     Indication: IMMUNOSUPPRESSION

REACTIONS (1)
  - LYMPHOPROLIFERATIVE DISORDER [None]
